FAERS Safety Report 10597707 (Version 1)
Quarter: 2014Q4

REPORT INFORMATION
  Report Type: Spontaneous
  Country: US (occurrence: None)
  Receive Date: 20141119
  Receipt Date: 20141119
  Transmission Date: 20150529
  Serious: Yes (Hospitalization, Other)
  Sender: FDA-Public Use
  Company Number: 2014RN000062

PATIENT
  Age: 21 Year
  Sex: Male

DRUGS (7)
  1. VANCOMYCIN (VANCOMYCIN) [Suspect]
     Active Substance: VANCOMYCIN
     Indication: SEPTIC SHOCK
     Dosage: UNK, INTRAVENOUS
     Route: 042
     Dates: end: 20140405
  2. SORAFENIB (SORAFENIB) (SORAFENIB) [Concomitant]
     Active Substance: SORAFENIB
  3. PROGRAF [Suspect]
     Active Substance: TACROLIMUS\TACROLIMUS ANHYDROUS
     Indication: STEM CELL TRANSPLANT
     Dosage: UNK, ORAL
     Route: 048
     Dates: end: 20140403
  4. HYDREA [Suspect]
     Active Substance: HYDROXYUREA
     Indication: WHITE BLOOD CELL COUNT INCREASED
     Dosage: 1 G, TID
     Dates: start: 20140325, end: 20140327
  5. MYCOPHENOLATE MOFETIL (MYCOPHENOLATE MOFETIL) [Concomitant]
     Active Substance: MYCOPHENOLATE MOFETIL
  6. ACYCLOVIR /00587301/ (ACICLOVIR) [Suspect]
     Active Substance: ACYCLOVIR
     Indication: PRODUCT USED FOR UNKNOWN INDICATION
     Dosage: UNK, INTRAVENOUS
     Route: 042
     Dates: start: 20140404, end: 20140405
  7. ACICLOVIR (ACICLOVIR) [Suspect]
     Active Substance: ACYCLOVIR
     Indication: PRODUCT USED FOR UNKNOWN INDICATION
     Dosage: ORAL
     Route: 048

REACTIONS (5)
  - Stomatitis [None]
  - Off label use [None]
  - Acute kidney injury [None]
  - Immunosuppressant drug level decreased [None]
  - Liver function test abnormal [None]

NARRATIVE: CASE EVENT DATE: 20140330
